FAERS Safety Report 25864562 (Version 3)
Quarter: 2025Q4

REPORT INFORMATION
  Report Type: Spontaneous
  Country: US (occurrence: US)
  Receive Date: 20250930
  Receipt Date: 20251202
  Transmission Date: 20260117
  Serious: No
  Sender: PFIZER
  Company Number: US-PFIZER INC-202500185132

PATIENT
  Age: 71 Year
  Sex: Female
  Weight: 83.46 kg

DRUGS (4)
  1. SOMATROPIN [Suspect]
     Active Substance: SOMATROPIN
     Indication: Growth hormone deficiency
     Dosage: 4 MG, DAILY (NIGHT TIME BEFORE I GO TO BED)
  2. ESTROGENS [Concomitant]
     Active Substance: ESTROGENS
     Dosage: 0.25 MG
  3. CHOLECALCIFEROL [Concomitant]
     Active Substance: CHOLECALCIFEROL
     Indication: Growth hormone deficiency
     Dosage: 50000MG, ONCE A WEEK
  4. WELLBUTRIN [Concomitant]
     Active Substance: BUPROPION HYDROCHLORIDE
     Indication: Neuropathy peripheral
     Dosage: 300MG, ONCE A DAY

REACTIONS (1)
  - Device breakage [Unknown]
